FAERS Safety Report 15697807 (Version 1)
Quarter: 2018Q4

REPORT INFORMATION
  Report Type: Spontaneous
  Country: US (occurrence: US)
  Receive Date: 20181126
  Receipt Date: 20181126
  Transmission Date: 20190205
  Serious: No
  Sender: FDA-Public Use
  Company Number: None

PATIENT
  Age: 74 Year
  Weight: 104.33 kg

DRUGS (2)
  1. FOLIC ACID 1MG TABLET [Suspect]
     Active Substance: FOLIC ACID
     Route: 048
     Dates: start: 201806
  2. OTREXUP [Suspect]
     Active Substance: METHOTREXATE
     Indication: RHEUMATOID ARTHRITIS
     Route: 058
     Dates: start: 201403

REACTIONS (1)
  - Skin cancer [None]
